FAERS Safety Report 13422693 (Version 1)
Quarter: 2017Q2

REPORT INFORMATION
  Report Type: Spontaneous
  Country: DE (occurrence: DE)
  Receive Date: 20170410
  Receipt Date: 20170410
  Transmission Date: 20170830
  Serious: Yes (Death, Life-Threatening, Hospitalization)
  Sender: FDA-Public Use
  Company Number: DE-WEST-WARD PHARMACEUTICALS CORP.-DE-H14001-16-02835

PATIENT
  Age: 74 Year
  Sex: Male
  Weight: 120 kg

DRUGS (2)
  1. METAMIZOLE [Suspect]
     Active Substance: METAMIZOLE
     Indication: POSTOPERATIVE ANALGESIA
     Route: 042
     Dates: start: 20160829, end: 20160906
  2. CIPROFLOXACIN. [Suspect]
     Active Substance: CIPROFLOXACIN
     Indication: URINARY TRACT INFECTION
     Route: 042
     Dates: start: 20160828, end: 20160906

REACTIONS (5)
  - Sepsis [Fatal]
  - Thrombocytopenia [Fatal]
  - Leukopenia [Fatal]
  - Bone marrow failure [Fatal]
  - Drug hypersensitivity [Fatal]

NARRATIVE: CASE EVENT DATE: 20160906
